FAERS Safety Report 10616017 (Version 1)
Quarter: 2014Q4

REPORT INFORMATION
  Report Type: Spontaneous
  Country: None (occurrence: None)
  Receive Date: 20141125
  Receipt Date: 20141125
  Transmission Date: 20150529
  Serious: No
  Sender: FDA-Public Use
  Company Number: None

PATIENT
  Age: 70 Year
  Sex: Male
  Weight: 86.18 kg

DRUGS (3)
  1. CARAFATE [Suspect]
     Active Substance: SUCRALFATE
     Indication: THROAT IRRITATION
     Dosage: 2 TSP
     Route: 048
     Dates: start: 20140805, end: 20140806
  2. CARAFATE [Suspect]
     Active Substance: SUCRALFATE
     Indication: RADIOTHERAPY
     Dosage: 2 TSP
     Route: 048
     Dates: start: 20140805, end: 20140806
  3. CARAFATE [Suspect]
     Active Substance: SUCRALFATE
     Indication: CHEMOTHERAPY
     Dosage: 2 TSP
     Route: 048
     Dates: start: 20140805, end: 20140806

REACTIONS (3)
  - Drug ineffective [None]
  - Product quality issue [None]
  - Product solubility abnormal [None]

NARRATIVE: CASE EVENT DATE: 20140808
